FAERS Safety Report 7203623-X (Version None)
Quarter: 2010Q4

REPORT INFORMATION
  Report Type: 
  Country: None (occurrence: None)
  Receive Date: 20101230
  Receipt Date: 20101227
  Transmission Date: 20110411
  Serious: Yes (Other)
  Sender: FDA-Public Use
  Company Number: CN-PFIZER INC-2010177961

PATIENT
  Age: 43 Year
  Sex: Male

DRUGS (2)
  1. CEFOPERAZONE SODIUM, SULBACTAM SODIUM [Suspect]
     Dosage: UNK
     Route: 042
     Dates: start: 20080101
  2. ALCOHOL [Suspect]
     Route: 048

REACTIONS (2)
  - ALCOHOL INTOLERANCE [None]
  - SHOCK [None]
